FAERS Safety Report 8355456-9 (Version None)
Quarter: 2012Q2

REPORT INFORMATION
  Report Type: 
  Country: None (occurrence: None)
  Receive Date: 20120511
  Receipt Date: 20120504
  Transmission Date: 20120825
  Serious: Yes (Life-Threatening, Other)
  Sender: FDA-Public Use
  Company Number: US-ROXANE LABORATORIES, INC.-2012-RO-01190RO

PATIENT
  Age: 39 Year
  Sex: Female

DRUGS (14)
  1. LEVOTHYROXINE SODIUM [Suspect]
  2. METFORMIN HCL [Suspect]
  3. PROMETHAZINE [Suspect]
  4. PROCHLORPERAZINE [Suspect]
  5. AMITRIPTYLINE HCL [Suspect]
  6. GABAPENTIN [Suspect]
  7. PRAVASTATIN [Suspect]
  8. METHADONE HCL [Suspect]
     Indication: PAIN
  9. CITALOPRAM [Suspect]
  10. TRIMETHOPRIM + SULFAMETHOXAZOLE [Suspect]
     Indication: DYSURIA
  11. BUSPIRONE HCL [Suspect]
  12. MECLIZINE [Suspect]
  13. QUETIAPINE FUMARATE [Suspect]
  14. ZONISAMIDE [Suspect]

REACTIONS (2)
  - SEROTONIN SYNDROME [None]
  - URINARY TRACT INFECTION [None]
